FAERS Safety Report 17062644 (Version 1)
Quarter: 2019Q4

REPORT INFORMATION
  Report Type: Spontaneous
  Country: US (occurrence: US)
  Receive Date: 20191122
  Receipt Date: 20191122
  Transmission Date: 20200122
  Serious: No
  Sender: FDA-Public Use
  Company Number: US-ASTRAZENECA-2019SF57119

PATIENT
  Age: 738 Month
  Sex: Male
  Weight: 56.2 kg

DRUGS (5)
  1. SINGULAIR MONTELUKAST [Concomitant]
     Indication: HYPERSENSITIVITY
  2. TAMSOLOSIN [Concomitant]
     Indication: BLADDER DISCOMFORT
  3. PREDNISONE. [Concomitant]
     Active Substance: PREDNISONE
     Indication: VIRAL INFECTION
     Dosage: 10MG TIMES 4 DAILY FOR 4 DAYS THEN PREDNISONE 10MG TIMES 2 ONCE A DAY FOR 4 DAYS
     Dates: start: 201910
  4. ADVAIR HFA [Concomitant]
     Active Substance: FLUTICASONE PROPIONATE\SALMETEROL XINAFOATE
  5. SYMBICORT [Suspect]
     Active Substance: BUDESONIDE\FORMOTEROL FUMARATE DIHYDRATE
     Indication: ASTHMA
     Dosage: 160-4.5MCG TWO PUFFS TWICE A DAY
     Route: 055

REACTIONS (4)
  - Viral infection [Not Recovered/Not Resolved]
  - Medication error [Not Recovered/Not Resolved]
  - Device malfunction [Recovered/Resolved]
  - Product dose omission [Recovered/Resolved]

NARRATIVE: CASE EVENT DATE: 201910
